FAERS Safety Report 9398489 (Version 2)
Quarter: 2013Q3

REPORT INFORMATION
  Report Type: Report from Study
  Country: CA (occurrence: CA)
  Receive Date: 20130712
  Receipt Date: 20130726
  Transmission Date: 20140515
  Serious: Yes (Hospitalization)
  Sender: FDA-Public Use
  Company Number: CA-JNJFOC-20130704496

PATIENT
  Age: 53 Year
  Sex: Female
  Weight: 51.8 kg

DRUGS (7)
  1. REMICADE [Suspect]
     Indication: CROHN^S DISEASE
     Route: 042
     Dates: start: 200805
  2. ESOMEPRAZOLE [Concomitant]
     Route: 065
  3. AZATHIOPRINE [Concomitant]
     Route: 065
  4. TEMAZEPAM [Concomitant]
     Route: 065
  5. VITAMIN D [Concomitant]
     Route: 065
  6. OMEGA 3-6-9 [Concomitant]
     Dosage: 3-6-9 (UNITS UNSPECIFIED)
     Route: 065
  7. VIT B COMPLEX [Concomitant]
     Dosage: 100 (UNITS UNSPECIFIED)
     Route: 065

REACTIONS (2)
  - Fistula [Unknown]
  - Gastrointestinal fistula [Unknown]
